FAERS Safety Report 21791735 (Version 2)
Quarter: 2023Q1

REPORT INFORMATION
  Report Type: Report from Study
  Country: IE (occurrence: IE)
  Receive Date: 20221229
  Receipt Date: 20230304
  Transmission Date: 20230417
  Serious: Yes (Other)
  Sender: FDA-Public Use
  Company Number: IE-002147023-NVSC2022IE295667

PATIENT
  Age: 31 Year
  Sex: Female

DRUGS (2)
  1. COSENTYX [Suspect]
     Active Substance: SECUKINUMAB
     Indication: Psoriasis
     Dosage: 300 MG
     Route: 065
     Dates: start: 20220714
  2. PANTOPRAZOLE SODIUM [Concomitant]
     Active Substance: PANTOPRAZOLE SODIUM
     Indication: Gastrointestinal disorder
     Dosage: UNK
     Route: 065

REACTIONS (7)
  - Pulmonary thrombosis [Unknown]
  - Cough [Unknown]
  - Lower respiratory tract infection [Recovered/Resolved]
  - Pyrexia [Unknown]
  - Fatigue [Unknown]
  - Chest pain [Unknown]
  - Menstruation irregular [Unknown]

NARRATIVE: CASE EVENT DATE: 20221101
